FAERS Safety Report 14461149 (Version 2)
Quarter: 2021Q1

REPORT INFORMATION
  Report Type: Other
  Country: US (occurrence: US)
  Receive Date: 20180130
  Receipt Date: 20210125
  Transmission Date: 20210419
  Serious: No
  Sender: FDA-Public Use
  Company Number: US-ACORDA-ACO_143141_2017

PATIENT
  Sex: Female

DRUGS (2)
  1. AMPYRA [Suspect]
     Active Substance: DALFAMPRIDINE
     Indication: GAIT DISTURBANCE
  2. AMPYRA [Suspect]
     Active Substance: DALFAMPRIDINE
     Indication: MULTIPLE SCLEROSIS
     Dosage: 10 MILLIGRAM, BID
     Route: 048
     Dates: start: 2011

REACTIONS (6)
  - Inappropriate schedule of product administration [Unknown]
  - Illness [Unknown]
  - Therapy cessation [Unknown]
  - Dysgeusia [Unknown]
  - Anger [Unknown]
  - Gait disturbance [Unknown]

NARRATIVE: CASE EVENT DATE: 2017
